FAERS Safety Report 9270847 (Version 3)
Quarter: 2013Q2

REPORT INFORMATION
  Report Type: Report from Study
  Country: US (occurrence: US)
  Receive Date: 20130503
  Receipt Date: 20130626
  Transmission Date: 20140414
  Serious: Yes (Hospitalization, Other)
  Sender: FDA-Public Use
  Company Number: US-US-EMD SERONO, INC.-7208626

PATIENT
  Age: 24 Year
  Sex: Female
  Weight: 71 kg

DRUGS (6)
  1. REBIF [Suspect]
     Indication: MULTIPLE SCLEROSIS
     Route: 058
     Dates: start: 20130404
  2. REBIF [Suspect]
     Route: 058
  3. AMLODIN [Concomitant]
     Indication: PRODUCT USED FOR UNKNOWN INDICATION
     Route: 048
  4. TOPAMAX [Concomitant]
     Indication: PRODUCT USED FOR UNKNOWN INDICATION
     Route: 048
  5. TRAMADOL [Concomitant]
     Indication: PRODUCT USED FOR UNKNOWN INDICATION
     Route: 048
  6. RELPAX [Concomitant]
     Indication: HEADACHE

REACTIONS (5)
  - Abdominal pain [Recovering/Resolving]
  - Gastrointestinal sounds abnormal [Unknown]
  - Aphagia [Unknown]
  - Gallbladder disorder [Recovering/Resolving]
  - Constipation [Not Recovered/Not Resolved]
